FAERS Safety Report 4330800-8 (Version None)
Quarter: 2004Q1

REPORT INFORMATION
  Report Type: 
  Country: None (occurrence: None)
  Receive Date: 20040331
  Receipt Date: 20040312
  Transmission Date: 20041129
  Serious: Yes (Other)
  Sender: FDA-Public Use
  Company Number: US_991029382

PATIENT
  Age: 58 Year
  Sex: Female
  Weight: 77 kg

DRUGS (11)
  1. HUMATROPE [Suspect]
     Indication: BLOOD GROWTH HORMONE DECREASED
     Dosage: 5 MG DAY
     Dates: start: 19990413
  2. DARVOCET-N 100 [Suspect]
     Indication: MYALGIA
     Dosage: UNK
     Route: 065
     Dates: start: 19990901
  3. LEVOXYL [Concomitant]
  4. CYTOMEL [Concomitant]
  5. HYDROCORTISONE [Concomitant]
  6. FLORINEF (FLUIDROCORTISONE ACETATE) [Concomitant]
  7. TRICOR [Concomitant]
  8. ZOLOFT (SERTRALINE HDROCHLORIDE) [Concomitant]
  9. ESTRADERM [Concomitant]
  10. AMBIEN [Concomitant]
  11. EFFEXOR [Concomitant]

REACTIONS (19)
  - ABDOMINAL PAIN [None]
  - BLOOD TRIGLYCERIDES INCREASED [None]
  - DIARRHOEA [None]
  - DIZZINESS [None]
  - DRY SOCKET [None]
  - HYPERGLYCAEMIA [None]
  - INCREASED TENDENCY TO BRUISE [None]
  - MUSCULOSKELETAL DISORDER [None]
  - MYALGIA [None]
  - ORAL CANDIDIASIS [None]
  - PAIN [None]
  - PALPITATIONS [None]
  - PANCREATIC NEOPLASM [None]
  - SENSATION OF PRESSURE [None]
  - SOMNOLENCE [None]
  - SPLEEN DISORDER [None]
  - TOOTH INFECTION [None]
  - VISUAL DISTURBANCE [None]
  - WEIGHT DECREASED [None]
